FAERS Safety Report 4417906-X (Version None)
Quarter: 2004Q2

REPORT INFORMATION
  Report Type: 
  Country: None (occurrence: None)
  Receive Date: 20040618
  Receipt Date: 20040406
  Transmission Date: 20050107
  Serious: Yes (Hospitalization)
  Sender: FDA-Public Use
  Company Number: US-SHR-04-023671

PATIENT
  Age: 65 Year
  Sex: Female

DRUGS (1)
  1. FLUDARA [Suspect]
     Indication: CHRONIC LYMPHOCYTIC LEUKAEMIA
     Dosage: INTRAVENOUS
     Route: 042
     Dates: start: 19980101, end: 19980101

REACTIONS (4)
  - HYPERSENSITIVITY [None]
  - LYMPHADENOPATHY [None]
  - RHINITIS [None]
  - WHITE BLOOD CELL COUNT DECREASED [None]
